FAERS Safety Report 4784855-7 (Version None)
Quarter: 2005Q3

REPORT INFORMATION
  Report Type: 
  Country: None (occurrence: None)
  Receive Date: 20050928
  Receipt Date: 20050909
  Transmission Date: 20060218
  Serious: Yes (Hospitalization, Other)
  Sender: FDA-Public Use
  Company Number: USA031152655

PATIENT
  Age: 84 Year
  Sex: Female
  Weight: 50 kg

DRUGS (23)
  1. FORTEO [Suspect]
     Indication: OSTEOPOROSIS
     Dosage: 20 UG/1 DAY
     Dates: start: 20031112
  2. PREVACID [Concomitant]
  3. LISINOPRIL [Concomitant]
  4. ROCALTROL [Concomitant]
  5. HYDROCHLOROTHIAZIDE [Concomitant]
  6. PLAVIX [Concomitant]
  7. KCL (POTASSIUM CHLORIDE) [Concomitant]
  8. BEXTRA [Concomitant]
  9. ALLEGRA [Concomitant]
  10. QUININE [Concomitant]
  11. ATENOLOL [Concomitant]
  12. PROCRIT [Concomitant]
  13. IRON [Concomitant]
  14. QUESTRAN [Concomitant]
  15. IMODIUM [Concomitant]
  16. VIACTIV [Concomitant]
  17. FOLIC ACID [Concomitant]
  18. VITAMIN B COMPLEX CAP [Concomitant]
  19. FLAGYL [Concomitant]
  20. LABETALOL [Concomitant]
  21. POTASSIUM [Concomitant]
  22. CALCIUM GLUCONATE [Concomitant]
  23. VITAMIN E [Concomitant]

REACTIONS (12)
  - CEREBROVASCULAR ACCIDENT [None]
  - CORONARY ARTERY OCCLUSION [None]
  - ERUCTATION [None]
  - FEELING ABNORMAL [None]
  - FLATULENCE [None]
  - GASTRIC DISORDER [None]
  - HERPES ZOSTER [None]
  - MALAISE [None]
  - MUSCLE TIGHTNESS [None]
  - PAIN IN EXTREMITY [None]
  - PHARMACEUTICAL PRODUCT COMPLAINT [None]
  - STRESS [None]
